FAERS Safety Report 19766158 (Version 17)
Quarter: 2023Q1

REPORT INFORMATION
  Report Type: Spontaneous
  Country: CA (occurrence: CA)
  Receive Date: 20210831
  Receipt Date: 20230325
  Transmission Date: 20230418
  Serious: Yes (Other)
  Sender: FDA-Public Use
  Company Number: CA-CELLTRION INC.-2021CA008741

PATIENT

DRUGS (30)
  1. INFLECTRA [Suspect]
     Active Substance: INFLIXIMAB-DYYB
     Indication: Crohn^s disease
     Dosage: 310 MG, 0, 2, 6, THEN EVERY 8 WEEKS
     Route: 042
     Dates: start: 20210412, end: 20220210
  2. INFLECTRA [Suspect]
     Active Substance: INFLIXIMAB-DYYB
     Dosage: 310 MG, 0, 2, 6, THEN EVERY 8 WEEKS
     Route: 042
     Dates: start: 20210427
  3. INFLECTRA [Suspect]
     Active Substance: INFLIXIMAB-DYYB
     Dosage: 310 MG, 0, 2, 6, THEN EVERY 8 WEEKS
     Route: 042
     Dates: start: 20210525
  4. INFLECTRA [Suspect]
     Active Substance: INFLIXIMAB-DYYB
     Dosage: 310 MG, 0, 2, 6, THEN EVERY 8 WEEKS
     Route: 042
     Dates: start: 20210722
  5. INFLECTRA [Suspect]
     Active Substance: INFLIXIMAB-DYYB
     Dosage: 310 MG, 0, 2, 6, THEN EVERY 8 WEEKS
     Route: 042
     Dates: start: 20210916
  6. INFLECTRA [Suspect]
     Active Substance: INFLIXIMAB-DYYB
     Dosage: 310 MG, 0, 2, 6, THEN EVERY 8 WEEKS
     Route: 042
     Dates: start: 20211111
  7. INFLECTRA [Suspect]
     Active Substance: INFLIXIMAB-DYYB
     Dosage: 310 MG, 0, 2, 6, THEN EVERY 8 WEEKS
     Route: 042
     Dates: start: 20220210
  8. INFLECTRA [Suspect]
     Active Substance: INFLIXIMAB-DYYB
     Dosage: 540 MG, EVERY 8WEEKS
     Route: 042
     Dates: start: 20220407
  9. INFLECTRA [Suspect]
     Active Substance: INFLIXIMAB-DYYB
     Dosage: 540 MG (10 MG/KG), EVERY 8 WEEKS
     Route: 042
     Dates: start: 20220602
  10. INFLECTRA [Suspect]
     Active Substance: INFLIXIMAB-DYYB
     Dosage: 540 MG, EVERY 8WEEKS
     Route: 042
     Dates: start: 20220927
  11. INFLECTRA [Suspect]
     Active Substance: INFLIXIMAB-DYYB
     Dosage: 540 MG, EVERY 8WEEKS
     Route: 042
     Dates: start: 20220927
  12. INFLECTRA [Suspect]
     Active Substance: INFLIXIMAB-DYYB
     Dosage: 540 MG, EVERY 8WEEKS
     Route: 042
     Dates: start: 20220927
  13. INFLECTRA [Suspect]
     Active Substance: INFLIXIMAB-DYYB
     Dosage: 540 MG, EVERY 8WEEKS
     Route: 042
     Dates: start: 20221123
  14. INFLECTRA [Suspect]
     Active Substance: INFLIXIMAB-DYYB
     Dosage: 540 MG, EVERY 8WEEKS
     Route: 042
     Dates: start: 20230118
  15. INFLECTRA [Suspect]
     Active Substance: INFLIXIMAB-DYYB
     Dosage: 540 MG, EVERY 8WEEKS
     Route: 042
     Dates: start: 20230118
  16. INFLECTRA [Suspect]
     Active Substance: INFLIXIMAB-DYYB
     Dosage: 540 MG, EVERY 8WEEKS
     Route: 042
     Dates: start: 20230315
  17. ACETAMINOPHEN [Concomitant]
     Active Substance: ACETAMINOPHEN
     Indication: Premedication
     Dosage: 650 MG
     Route: 048
     Dates: start: 20210525, end: 20210525
  18. CLOBETASOL [Concomitant]
     Active Substance: CLOBETASOL
     Dosage: 1 DF, 2X/DAY, 0.05% APPLIED BID
     Route: 061
  19. CORTODERM [HYDROCORTISONE] [Concomitant]
     Dosage: 1 DF, 2X/DAY, 1 %, 2X/DAY, BID APPLICATION
     Route: 061
  20. EFUDEX [Concomitant]
     Active Substance: FLUOROURACIL
     Indication: Eczema
     Dosage: 1 DF, AS NEEDED
     Route: 065
  21. ESTRADIOL [Concomitant]
     Active Substance: ESTRADIOL
     Dosage: UNK
  22. ESTRADIOL [Concomitant]
     Active Substance: ESTRADIOL
     Dosage: 1 MG PER OS HS DAILY (1X/DAY)
  23. ESTRADIOL [Concomitant]
     Active Substance: ESTRADIOL
     Dosage: 1 MG PER OS HS DAILY (1X/DAY)
     Route: 048
  24. POTASSIUM [Concomitant]
     Active Substance: POTASSIUM
     Dosage: 1 DF DOSAGE NOT AVAILABLE
     Route: 065
  25. PROMETRIUM [Concomitant]
     Active Substance: PROGESTERONE
     Dosage: 100 MG, HS
  26. ALBUTEROL [Concomitant]
     Active Substance: ALBUTEROL
     Dosage: 100 MG, AS NEEDED, TWO PUFFS QID PM
  27. SPIRIVA [Concomitant]
     Active Substance: TIOTROPIUM BROMIDE MONOHYDRATE
     Dosage: 18 ONE INHALATION, DAILY
  28. SPIRIVA [Concomitant]
     Active Substance: TIOTROPIUM BROMIDE MONOHYDRATE
     Dosage: 1 DF, 1X/DAY
     Route: 055
  29. TOPISONE [Concomitant]
     Dosage: 1 DF, 2X/DAY, AS NEEDED, 0505% APPLIED BID PRN
     Route: 065
  30. PREDNISONE [Concomitant]
     Active Substance: PREDNISONE
     Dosage: 20 MG

REACTIONS (26)
  - Uveitis [Unknown]
  - Corneal abscess [Recovering/Resolving]
  - Therapeutic response shortened [Unknown]
  - Off label use [Unknown]
  - Intentional product use issue [Unknown]
  - Inappropriate schedule of product administration [Unknown]
  - Product dose omission issue [Unknown]
  - Condition aggravated [Not Recovered/Not Resolved]
  - Urticaria [Unknown]
  - Nausea [Not Recovered/Not Resolved]
  - Somnolence [Unknown]
  - Arthralgia [Not Recovered/Not Resolved]
  - Rash pruritic [Not Recovered/Not Resolved]
  - Acne [Not Recovered/Not Resolved]
  - Skin papilloma [Not Recovered/Not Resolved]
  - Dry mouth [Not Recovered/Not Resolved]
  - Dyspnoea [Not Recovered/Not Resolved]
  - Anal incontinence [Not Recovered/Not Resolved]
  - Diarrhoea [Recovered/Resolved]
  - Pruritus [Not Recovered/Not Resolved]
  - Eczema [Not Recovered/Not Resolved]
  - Drug level below therapeutic [Not Recovered/Not Resolved]
  - Inflammation [Unknown]
  - Fatigue [Not Recovered/Not Resolved]
  - Erythema nodosum [Unknown]
  - Eczema eyelids [Not Recovered/Not Resolved]

NARRATIVE: CASE EVENT DATE: 20210101
